FAERS Safety Report 5567511-7 (Version None)
Quarter: 2007Q4

REPORT INFORMATION
  Report Type: 
  Country: None (occurrence: None)
  Receive Date: 20071219
  Receipt Date: 20071207
  Transmission Date: 20080405
  Serious: Yes (Other)
  Sender: FDA-Public Use
  Company Number: US-PFIZER INC-2007104152

PATIENT
  Sex: Female
  Weight: 55 kg

DRUGS (7)
  1. CELEBREX [Suspect]
     Indication: OSTEOARTHRITIS
  2. CELEBREX [Suspect]
     Indication: FIBROMYALGIA
  3. FLEXERIL [Concomitant]
  4. PROZAC [Concomitant]
  5. KLONOPIN [Concomitant]
  6. VITAMIN B COMPLEX CAP [Concomitant]
  7. OXYCONTIN [Concomitant]

REACTIONS (1)
  - WEIGHT DECREASED [None]
